FAERS Safety Report 10669203 (Version 1)
Quarter: 2014Q4

REPORT INFORMATION
  Report Type: Report from Study
  Country: US (occurrence: US)
  Receive Date: 20141222
  Receipt Date: 20141222
  Transmission Date: 20150529
  Serious: Yes (Other)
  Sender: FDA-Public Use
  Company Number: US-BAXTER-2014BAX075389

PATIENT

DRUGS (1)
  1. IFEX [Suspect]
     Active Substance: IFOSFAMIDE
     Indication: TAKAYASU^S ARTERITIS
     Route: 042

REACTIONS (1)
  - Treatment failure [Unknown]
